FAERS Safety Report 12653791 (Version 2)
Quarter: 2016Q3

REPORT INFORMATION
  Report Type: Spontaneous
  Country: CN (occurrence: CN)
  Receive Date: 20160816
  Receipt Date: 20160817
  Transmission Date: 20161109
  Serious: No
  Sender: FDA-Public Use
  Company Number: CN-JNJFOC-20160802016

PATIENT
  Age: 1 Year
  Sex: Female
  Weight: 1.31 kg

DRUGS (2)
  1. MOTRIN [Suspect]
     Active Substance: IBUPROFEN
     Indication: PATENT DUCTUS ARTERIOSUS
     Dosage: 0.15ML AT 11.00
     Route: 048
     Dates: start: 20160518, end: 201605
  2. MOTRIN [Suspect]
     Active Substance: IBUPROFEN
     Indication: PATENT DUCTUS ARTERIOSUS
     Dosage: 0.3 ML AT 11.00
     Route: 048
     Dates: start: 20160517, end: 20160517

REACTIONS (3)
  - Product use issue [Recovering/Resolving]
  - Peptic ulcer [Recovering/Resolving]
  - Off label use [Recovering/Resolving]

NARRATIVE: CASE EVENT DATE: 20160517
